FAERS Safety Report 4888383-X (Version None)
Quarter: 2006Q1

REPORT INFORMATION
  Report Type: 
  Country: None (occurrence: None)
  Receive Date: 20060118
  Receipt Date: 20060104
  Transmission Date: 20060701
  Serious: Yes (Other)
  Sender: FDA-Public Use
  Company Number: L06-ESP-00032-02

PATIENT
  Age: 80 Year
  Sex: Female

DRUGS (1)
  1. DILTIAZEM HCL [Suspect]

REACTIONS (2)
  - DERMATITIS EXFOLIATIVE GENERALISED [None]
  - SKIN TEST POSITIVE [None]
